FAERS Safety Report 13160047 (Version 1)
Quarter: 2017Q1

REPORT INFORMATION
  Report Type: Spontaneous
  Country: JP (occurrence: JP)
  Receive Date: 20170127
  Receipt Date: 20170127
  Transmission Date: 20170428
  Serious: Yes (Other)
  Sender: FDA-Public Use
  Company Number: JP-GE HEALTHCARE MEDICAL DIAGNOSTICS-DATS-PR-1701S-0005

PATIENT
  Age: 85 Year
  Sex: Female

DRUGS (2)
  1. DATSCAN [Suspect]
     Active Substance: IODINE\IOFLUPANE I-123
     Indication: DEMENTIA ALZHEIMER^S TYPE
     Dosage: DOSE NOT REPORTED
     Route: 042
     Dates: start: 20161115, end: 20161115
  2. DATSCAN [Suspect]
     Active Substance: IODINE\IOFLUPANE I-123
     Indication: DIAGNOSTIC PROCEDURE

REACTIONS (3)
  - Hypotension [Recovering/Resolving]
  - Vomiting [Recovering/Resolving]
  - Feeling cold [Recovering/Resolving]

NARRATIVE: CASE EVENT DATE: 20161115
